FAERS Safety Report 18730058 (Version 1)
Quarter: 2021Q1

REPORT INFORMATION
  Report Type: Spontaneous
  Country: DE (occurrence: DE)
  Receive Date: 20210112
  Receipt Date: 20210112
  Transmission Date: 20210419
  Serious: No
  Sender: FDA-Public Use
  Company Number: DE-TOLMAR, INC.-20DE024832

PATIENT
  Age: 29 Year
  Sex: Female

DRUGS (5)
  1. IDARUBICINE [Concomitant]
     Active Substance: IDARUBICIN
     Indication: ACUTE MYELOID LEUKAEMIA
     Dosage: 12MG/M2 ON DAY
  2. FLUDARABINE [Concomitant]
     Active Substance: FLUDARABINE PHOSPHATE
     Indication: ACUTE MYELOID LEUKAEMIA
     Dosage: 30 MG/M2
  3. ELIGARD [Suspect]
     Active Substance: LEUPROLIDE ACETATE
     Indication: MANAGEMENT OF REPRODUCTION
     Dosage: UNK
     Route: 065
  4. CYTARABINE. [Concomitant]
     Active Substance: CYTARABINE
     Indication: ACUTE MYELOID LEUKAEMIA
     Dosage: 1000MG/M2 BID
  5. TREOSULFAN [Concomitant]
     Active Substance: TREOSULFAN
     Indication: ACUTE MYELOID LEUKAEMIA
     Dosage: 14G/M2

REACTIONS (1)
  - Off label use [Unknown]
